FAERS Safety Report 10396078 (Version 1)
Quarter: 2014Q3

REPORT INFORMATION
  Report Type: Report from Study
  Country: IL (occurrence: IL)
  Receive Date: 20140820
  Receipt Date: 20140820
  Transmission Date: 20150326
  Serious: Yes (Death)
  Sender: FDA-Public Use
  Company Number: IL-SA-2014SA112078

PATIENT

DRUGS (10)
  1. MELPHALAN [Suspect]
     Active Substance: MELPHALAN
     Indication: BONE MARROW CONDITIONING REGIMEN
     Dosage: DOSE: 100-150 MG/M2
     Route: 065
  2. METHOTREXATE [Concomitant]
     Active Substance: METHOTREXATE
     Dosage: 15 MG/M2 ON DAY 1 AND 10 MG/M2 ON DAYS 3 AND 6
  3. ANTIBIOTICS [Concomitant]
     Active Substance: UNSPECIFIED INGREDIENT
     Indication: PROPHYLAXIS
  4. TREOSULFAN [Suspect]
     Active Substance: TREOSULFAN
     Indication: BONE MARROW CONDITIONING REGIMEN
     Dosage: DOSE:30 GRAM(S)/SQUARE METER
     Route: 042
  5. G-CSF [Concomitant]
     Active Substance: FILGRASTIM
     Dosage: WAS ADMINISTERED ROUTINELY FROM DAY +4 UNTIL ENGRAFTMENT
  6. PHENYTOIN. [Concomitant]
     Active Substance: PHENYTOIN
     Dosage: (ADMINISTERED BEFORE AND UNTIL 24 H AFTER COMPLETION OF BUSULFAN)
  7. CYCLOSPORIN A [Concomitant]
     Active Substance: CYCLOSPORINE
     Indication: PROPHYLAXIS AGAINST GRAFT VERSUS HOST DISEASE
  8. FLUDARABINE PHOSPHATE. [Suspect]
     Active Substance: FLUDARABINE PHOSPHATE
     Indication: BONE MARROW CONDITIONING REGIMEN
     Dosage: DOSE: 125-180 MG/M2
     Route: 042
  9. BUSULFAN [Suspect]
     Active Substance: BUSULFAN
     Indication: BONE MARROW CONDITIONING REGIMEN
     Dosage: TOTAL DOSE: 8 MG/KG
     Route: 048
  10. BUSULFAN [Suspect]
     Active Substance: BUSULFAN
     Indication: BONE MARROW CONDITIONING REGIMEN
     Dosage: DOSE: A TOTAL DOSE OF 6.4 MG/KG
     Route: 042

REACTIONS (1)
  - Thrombotic microangiopathy [Fatal]
